FAERS Safety Report 11125028 (Version 2)
Quarter: 2015Q3

REPORT INFORMATION
  Report Type: Spontaneous
  Country: US (occurrence: US)
  Receive Date: 20150520
  Receipt Date: 20150716
  Transmission Date: 20151125
  Serious: Yes (Hospitalization)
  Sender: FDA-Public Use
  Company Number: US-ABBVIE-15P-163-1392246-00

PATIENT
  Age: 60 Year
  Sex: Male
  Weight: 74 kg

DRUGS (29)
  1. ASA [Concomitant]
     Active Substance: ASPIRIN
     Indication: PRODUCT USED FOR UNKNOWN INDICATION
  2. NITROGLYCERIN. [Concomitant]
     Active Substance: NITROGLYCERIN
     Indication: PRODUCT USED FOR UNKNOWN INDICATION
  3. PHENERGAN [Concomitant]
     Active Substance: PROMETHAZINE HYDROCHLORIDE
     Indication: PRODUCT USED FOR UNKNOWN INDICATION
     Dosage: EVERY 6 HOURS
  4. ANDROGEL [Suspect]
     Active Substance: TESTOSTERONE
     Indication: BLOOD TESTOSTERONE DECREASED
     Dosage: 2 PUMPS ON EVEN DAYS;3 PUMPS ON ODD DAYS
     Route: 065
     Dates: start: 200311, end: 201403
  5. ANDROGEL [Suspect]
     Active Substance: TESTOSTERONE
     Dosage: 2 PUMPS TO EACH SHOULDER
     Route: 065
  6. METOPROLOL SUCCINATE. [Concomitant]
     Active Substance: METOPROLOL SUCCINATE
     Indication: CARDIAC DISORDER
     Dates: start: 2009
  7. GABAPENTIN. [Concomitant]
     Active Substance: GABAPENTIN
     Indication: DIABETES MELLITUS
     Dosage: AT BEDTIME
     Route: 048
     Dates: start: 2014
  8. ANDROGEL [Suspect]
     Active Substance: TESTOSTERONE
     Dosage: 2 PUMPS ON ODD EVEN DAYS; 3 PUMPS ON ODD DAYS
     Route: 061
  9. ANDROGEL [Suspect]
     Active Substance: TESTOSTERONE
     Indication: PRODUCT USED FOR UNKNOWN INDICATION
     Dosage: PK=150 GEL
     Route: 061
  10. LANTUS [Concomitant]
     Active Substance: INSULIN GLARGINE
     Dosage: AT BEDTIME; 100U/ML INJ
     Route: 058
  11. PLAVIX [Concomitant]
     Active Substance: CLOPIDOGREL BISULFATE
     Indication: PRODUCT USED FOR UNKNOWN INDICATION
  12. PRISTIQ EXTENDED RELEASE [Concomitant]
     Active Substance: DESVENLAFAXINE SUCCINATE
     Indication: PRODUCT USED FOR UNKNOWN INDICATION
     Route: 048
  13. EFFIENT [Concomitant]
     Active Substance: PRASUGREL HYDROCHLORIDE
     Indication: CARDIAC DISORDER
     Dates: start: 2014
  14. ASPIRIN. [Concomitant]
     Active Substance: ASPIRIN
     Indication: CARDIAC DISORDER
     Dates: start: 2013
  15. RANEXA [Concomitant]
     Active Substance: RANOLAZINE
     Indication: CARDIAC DISORDER
     Dates: start: 2013
  16. METOPROLOL SUCCINATE. [Concomitant]
     Active Substance: METOPROLOL SUCCINATE
     Route: 048
  17. LANTUS [Concomitant]
     Active Substance: INSULIN GLARGINE
     Dosage: AS DIRECTED; AT BEDTIME
     Route: 058
  18. LANTUS [Concomitant]
     Active Substance: INSULIN GLARGINE
     Dosage: 100U/ML INJ; AT BEDTIME AS DIRECTED
     Route: 058
  19. VITAMIN D [Concomitant]
     Active Substance: CHOLECALCIFEROL
     Indication: PRODUCT USED FOR UNKNOWN INDICATION
  20. ZOLOFT [Concomitant]
     Active Substance: SERTRALINE HYDROCHLORIDE
     Indication: DEPRESSION
     Route: 048
     Dates: start: 2008
  21. ANDROGEL [Suspect]
     Active Substance: TESTOSTERONE
     Dosage: 6 PUMPS; 7.5GMS
     Route: 065
     Dates: start: 20110413
  22. RAMIPRIL. [Concomitant]
     Active Substance: RAMIPRIL
     Indication: CARDIAC DISORDER
     Route: 048
     Dates: start: 2009
  23. ATORVASTATIN [Concomitant]
     Active Substance: ATORVASTATIN
     Indication: CARDIAC DISORDER
     Dosage: AT BEDTIME
     Dates: start: 2010
  24. LANTUS [Concomitant]
     Active Substance: INSULIN GLARGINE
     Indication: DIABETES MELLITUS
     Dosage: AT BEDTIME; 100U/ML INJ;
     Route: 058
     Dates: start: 2003, end: 2012
  25. NIASPAN ER [Concomitant]
     Active Substance: NIACIN
     Indication: PRODUCT USED FOR UNKNOWN INDICATION
     Dosage: AT BEDTIME WITH 325MG ASPIRIN
     Route: 048
  26. LANTUS [Concomitant]
     Active Substance: INSULIN GLARGINE
     Dosage: 40 TO 50 UNITS AT BEDTIME; 100U/ML
     Route: 058
  27. LANTUS [Concomitant]
     Active Substance: INSULIN GLARGINE
     Dosage: 30 UNITS IN THE AM; 25 UNITS IN THE PM AS DIRECTED
  28. HUMALOG [Concomitant]
     Active Substance: INSULIN LISPRO
     Indication: PRODUCT USED FOR UNKNOWN INDICATION
  29. VALIUM [Concomitant]
     Active Substance: DIAZEPAM
     Indication: VERTIGO
     Dosage: EVERY 6 HOURS

REACTIONS (13)
  - Mitral valve disease [Unknown]
  - Vertigo [Unknown]
  - Fall [Unknown]
  - Lacunar infarction [Unknown]
  - Depression [Unknown]
  - Tricuspid valve incompetence [Unknown]
  - Nystagmus [Unknown]
  - Basal ganglia haemorrhage [Unknown]
  - Dilatation ventricular [Unknown]
  - Mitral valve incompetence [Unknown]
  - Left ventricular hypertrophy [Unknown]
  - Left ventricular dysfunction [Unknown]
  - Myocardial infarction [Unknown]

NARRATIVE: CASE EVENT DATE: 201308
